FAERS Safety Report 5505094-8 (Version None)
Quarter: 2007Q4

REPORT INFORMATION
  Report Type: 
  Country: None (occurrence: None)
  Receive Date: 20071102
  Receipt Date: 20071025
  Transmission Date: 20080405
  Serious: Yes (Hospitalization)
  Sender: FDA-Public Use
  Company Number: JP-ASTRAZENECA-2007AP06504

PATIENT
  Age: 28873 Day
  Sex: Female
  Weight: 50 kg

DRUGS (16)
  1. IRESSA [Suspect]
     Indication: LUNG ADENOCARCINOMA STAGE III
     Route: 048
     Dates: start: 20070720, end: 20071010
  2. IRESSA [Suspect]
     Route: 048
     Dates: start: 20071025
  3. ALFAROL [Concomitant]
     Indication: OSTEOPOROSIS
     Route: 048
     Dates: start: 19940722
  4. ASPARA-CA [Concomitant]
     Indication: OSTEOPOROSIS
     Route: 048
     Dates: start: 19970506, end: 20070728
  5. NOLVADEX [Concomitant]
     Indication: BREAST CANCER
     Route: 048
     Dates: start: 20010627, end: 20070718
  6. VITAMEDIN [Concomitant]
     Indication: OSTEOARTHRITIS
     Route: 048
     Dates: start: 20011113, end: 20070829
  7. LANSOPRAZOLE [Concomitant]
     Indication: GASTRITIS PROPHYLAXIS
     Route: 048
     Dates: start: 20040724, end: 20070724
  8. ACTONEL [Concomitant]
     Indication: OSTEOPOROSIS
     Route: 048
     Dates: start: 20041104
  9. NORVASC [Concomitant]
     Indication: HYPERTENSION
     Route: 048
     Dates: start: 20060608
  10. CODEINE SUL TAB [Concomitant]
     Indication: COUGH
     Route: 048
     Dates: start: 20070627, end: 20070822
  11. MAGNESIUM OXIDE [Concomitant]
     Indication: CONSTIPATION
     Route: 048
     Dates: start: 20070627, end: 20070822
  12. MUCOSOLVAN [Concomitant]
     Indication: COUGH
     Route: 048
     Dates: start: 20070705, end: 20070822
  13. CALCIUM LACTATE [Concomitant]
     Indication: OSTEOPOROSIS
     Route: 048
     Dates: start: 20070728
  14. PYDOXAL [Concomitant]
     Indication: STOMATITIS
     Route: 048
  15. MUCOSTA [Concomitant]
     Indication: GASTRITIS PROPHYLAXIS
     Route: 048
  16. GLUFAST [Concomitant]
     Indication: DIABETES MELLITUS
     Route: 048

REACTIONS (1)
  - LARYNGEAL GRANULOMA [None]
